FAERS Safety Report 22313761 (Version 1)
Quarter: 2023Q2

REPORT INFORMATION
  Report Type: Spontaneous
  Country: JP (occurrence: JP)
  Receive Date: 20230512
  Receipt Date: 20230512
  Transmission Date: 20230721
  Serious: Yes (Life-Threatening, Hospitalization, Other)
  Sender: FDA-Public Use
  Company Number: JP-PFIZER INC-202300185158

PATIENT
  Age: 45 Year
  Sex: Female

DRUGS (3)
  1. MEROPENEM [Suspect]
     Active Substance: MEROPENEM
     Indication: Pyrexia
     Dosage: UNK
  2. TEICOPLANIN [Suspect]
     Active Substance: TEICOPLANIN
     Indication: Pyrexia
     Dosage: UNK
  3. MICAFUNGIN [Suspect]
     Active Substance: MICAFUNGIN SODIUM
     Indication: Pyrexia
     Dosage: UNK

REACTIONS (1)
  - Therapeutic product effect incomplete [Unknown]
